FAERS Safety Report 9031253 (Version 3)
Quarter: 2013Q2

REPORT INFORMATION
  Report Type: Spontaneous
  Country: US (occurrence: US)
  Receive Date: 20130123
  Receipt Date: 20130515
  Transmission Date: 20140414
  Serious: Yes (Death, Hospitalization, Other)
  Sender: FDA-Public Use
  Company Number: US-INCYTE CORPORATION-2013IN000109

PATIENT
  Age: 73 Year
  Sex: Male
  Weight: 72.11 kg

DRUGS (3)
  1. JAKAFI [Suspect]
     Indication: MYELOFIBROSIS
     Dosage: 15 MG, BID
     Route: 048
     Dates: start: 20111223, end: 201203
  2. JAKAFI [Suspect]
     Dosage: 10 MG, BID
     Route: 048
     Dates: start: 201203, end: 20121127
  3. JAKAFI [Suspect]
     Dosage: 15 MG, BID
     Route: 048
     Dates: start: 20121128, end: 201302

REACTIONS (12)
  - Death [Fatal]
  - Pulmonary thrombosis [Unknown]
  - Pneumonia [Unknown]
  - Abdominal pain [Unknown]
  - Splenomegaly [Unknown]
  - Thrombocytopenia [Unknown]
  - Dyspnoea [Unknown]
  - Laceration [Unknown]
  - Dry skin [Unknown]
  - Splenomegaly [Not Recovered/Not Resolved]
  - Fall [Unknown]
  - Disease progression [Unknown]
